FAERS Safety Report 5117021-6 (Version None)
Quarter: 2006Q3

REPORT INFORMATION
  Report Type: 
  Country: None (occurrence: None)
  Receive Date: 20060925
  Receipt Date: 20060912
  Transmission Date: 20061208
  Serious: Yes (Death, Hospitalization)
  Sender: FDA-Public Use
  Company Number: 229857

PATIENT
  Age: 73 Year
  Sex: Male
  Weight: 90 kg

DRUGS (5)
  1. MABTHERA (RITUXIMAB) CONC FOR SOLUTION FOR INFUSION [Suspect]
     Indication: SKIN DISORDER
     Dosage: 500 MG, INTRAVENOUS
     Route: 042
     Dates: start: 20060315, end: 20060315
  2. CELLCEPT [Concomitant]
  3. DACORTIN (PREDNISONE) [Concomitant]
  4. IMURAN [Concomitant]
  5. METHOTREXATE [Concomitant]

REACTIONS (2)
  - PNEUMONIA [None]
  - SEPSIS [None]
